FAERS Safety Report 15794098 (Version 1)
Quarter: 2019Q1

REPORT INFORMATION
  Report Type: Spontaneous
  Country: CN (occurrence: CN)
  Receive Date: 20190107
  Receipt Date: 20190107
  Transmission Date: 20190417
  Serious: Yes (Other)
  Sender: FDA-Public Use
  Company Number: CN-PFIZER INC-2019001421

PATIENT
  Age: 20 Year
  Sex: Male

DRUGS (1)
  1. SOLU-MEDROL [Suspect]
     Active Substance: METHYLPREDNISOLONE SODIUM SUCCINATE
     Indication: ASTHMA
     Dosage: 40 MG, UNK
     Dates: start: 20190102

REACTIONS (3)
  - Anaphylactic shock [Unknown]
  - Cardiac arrest [Unknown]
  - Rash [Unknown]

NARRATIVE: CASE EVENT DATE: 20190102
